FAERS Safety Report 13716979 (Version 1)
Quarter: 2017Q3

REPORT INFORMATION
  Report Type: Spontaneous
  Country: US (occurrence: US)
  Receive Date: 20170704
  Receipt Date: 20170704
  Transmission Date: 20171127
  Serious: No
  Sender: FDA-Public Use
  Company Number: None

PATIENT
  Age: 54 Year
  Sex: Female
  Weight: 58.5 kg

DRUGS (5)
  1. NEUTROGENA ULTRA SHEER FACE AND BODY STICK SPF 70 [Concomitant]
  2. ULTRA SHEER SUNSCREEN LOTION [Suspect]
     Active Substance: AVOBENZONE\HOMOSALATE\OCTISALATE\OCTOCRYLENE
     Indication: PROPHYLAXIS AGAINST SOLAR RADIATION
     Dosage: OTHER STRENGTH:ML;QUANTITY:3 OUNCE(S);?
     Route: 061
     Dates: start: 20170516, end: 20170610
  3. AVEENO DAILY MOISTURIZING [Concomitant]
     Active Substance: DIMETHICONE
  4. AVEENO LOTION SPF 15 [Concomitant]
  5. CETAPHIL SPF 30 [Concomitant]

REACTIONS (2)
  - Application site erythema [None]
  - Application site pruritus [None]

NARRATIVE: CASE EVENT DATE: 20170516
